FAERS Safety Report 10356860 (Version 1)
Quarter: 2014Q3

REPORT INFORMATION
  Report Type: Spontaneous
  Country: US (occurrence: None)
  Receive Date: 20140730
  Receipt Date: 20140730
  Transmission Date: 20150326
  Serious: Yes (Other)
  Sender: FDA-Public Use
  Company Number: None

PATIENT
  Age: 65 Year
  Sex: Female
  Weight: 83.46 kg

DRUGS (5)
  1. ACITRETIN [Concomitant]
     Active Substance: ACITRETIN
  2. TRAMADOL [Concomitant]
     Active Substance: TRAMADOL
  3. CALCIUM [Concomitant]
     Active Substance: CALCIUM
  4. ZOLEDRONIC [Suspect]
     Active Substance: ZOLEDRONIC ACID
     Indication: OSTEOPOROSIS
     Dosage: 5MG EVERY YEAR INTRAVENOUS
     Route: 042
     Dates: start: 20140722
  5. VITAMIN D [Concomitant]
     Active Substance: CHOLECALCIFEROL

REACTIONS (1)
  - Rash [None]

NARRATIVE: CASE EVENT DATE: 20140723
